FAERS Safety Report 25814093 (Version 1)
Quarter: 2025Q3

REPORT INFORMATION
  Report Type: Report from Study
  Country: US (occurrence: US)
  Receive Date: 20250917
  Receipt Date: 20250917
  Transmission Date: 20251020
  Serious: Yes (Hospitalization)
  Sender: BAYER HEALTHCARE PHARMACEUTICALS INC.
  Company Number: US-BAYER-2025A122049

PATIENT
  Age: 88 Year
  Sex: Female
  Weight: 64.853 kg

DRUGS (21)
  1. ADEMPAS [Suspect]
     Active Substance: RIOCIGUAT
     Indication: Pulmonary arterial hypertension
     Dosage: 0.5 MG, TID
     Route: 048
     Dates: start: 20250324
  2. LEVOTHYROXINE SODIUM [Concomitant]
     Active Substance: LEVOTHYROXINE SODIUM
  3. MECLIZINE HYDROCHLORIDE [Concomitant]
     Active Substance: MECLIZINE HYDROCHLORIDE
  4. CLONIDINE HYDROCHLORIDE [Concomitant]
     Active Substance: CLONIDINE HYDROCHLORIDE
  5. Stress b complex [Concomitant]
  6. ACETAMINOPHEN [Concomitant]
     Active Substance: ACETAMINOPHEN
  7. HYDRALAZINE HCL [Concomitant]
     Active Substance: HYDRALAZINE HYDROCHLORIDE
  8. ESCITALOPRAM OXALATE [Concomitant]
     Active Substance: ESCITALOPRAM OXALATE
  9. NEXLIZET [Concomitant]
     Active Substance: BEMPEDOIC ACID\EZETIMIBE
  10. CLOPIDOGREL [Concomitant]
     Active Substance: CLOPIDOGREL BISULFATE
  11. VITAMIN D3 [Concomitant]
     Active Substance: CHOLECALCIFEROL
  12. PROBIOTICS NOS [Concomitant]
     Active Substance: PROBIOTICS NOS
  13. ZOLPIDEM TARTRATE [Concomitant]
     Active Substance: ZOLPIDEM TARTRATE
  14. NEBIVOLOL [Concomitant]
     Active Substance: NEBIVOLOL
  15. CELEBREX [Concomitant]
     Active Substance: CELECOXIB
  16. MAGNESIUM [Concomitant]
     Active Substance: MAGNESIUM
  17. ASPIRIN [Concomitant]
     Active Substance: ASPIRIN
  18. GABAPENTIN [Concomitant]
     Active Substance: GABAPENTIN
  19. DEXILANT [Concomitant]
     Active Substance: DEXLANSOPRAZOLE
  20. FERROUS SULFATE [Concomitant]
     Active Substance: FERROUS SULFATE
  21. Omega [Concomitant]

REACTIONS (3)
  - Dehydration [None]
  - Hypotension [None]
  - Diarrhoea [None]

NARRATIVE: CASE EVENT DATE: 20250801
